FAERS Safety Report 5401345-9 (Version None)
Quarter: 2007Q3

REPORT INFORMATION
  Report Type: 
  Country: None (occurrence: None)
  Receive Date: 20070731
  Receipt Date: 20070726
  Transmission Date: 20080115
  Serious: Yes (Life-Threatening, Other)
  Sender: FDA-Public Use
  Company Number: A0665396A

PATIENT
  Age: 63 Year
  Sex: Female

DRUGS (2)
  1. LAMICTAL [Suspect]
     Indication: BIPOLAR DISORDER
     Dosage: 125MG PER DAY
     Route: 048
  2. ANTIHISTAMINES [Concomitant]

REACTIONS (2)
  - ILL-DEFINED DISORDER [None]
  - SKIN CANCER [None]
